FAERS Safety Report 8188564-6 (Version None)
Quarter: 2012Q1

REPORT INFORMATION
  Report Type: 
  Country: None (occurrence: None)
  Receive Date: 20120306
  Receipt Date: 20120302
  Transmission Date: 20120608
  Serious: Yes (Hospitalization, Other)
  Sender: FDA-Public Use
  Company Number: PHHY2012BR019045

PATIENT
  Sex: Male

DRUGS (3)
  1. DIOVAN [Suspect]
     Dosage: 320 MG, UNK
  2. DIOVAN [Suspect]
     Dosage: 160 MG, UNK
  3. DIOVAN [Suspect]
     Dosage: 80 MG, UNK

REACTIONS (1)
  - AORTIC ANEURYSM [None]
